FAERS Safety Report 5368396-4 (Version None)
Quarter: 2007Q2

REPORT INFORMATION
  Report Type: 
  Country: None (occurrence: None)
  Receive Date: 20070622
  Receipt Date: 20070622
  Transmission Date: 20071010
  Serious: No
  Sender: FDA-Public Use
  Company Number: None

PATIENT
  Age: 46 Year
  Sex: Male
  Weight: 93.441 kg

DRUGS (1)
  1. GEMZAR [Suspect]
     Indication: PLEURAL NEOPLASM
     Dosage: 1000 MG  EVERY 7 DAYS  IV
     Route: 042
     Dates: start: 20070504, end: 20070601

REACTIONS (1)
  - PNEUMONITIS [None]
